FAERS Safety Report 9344516 (Version 2)
Quarter: 2013Q3

REPORT INFORMATION
  Report Type: Report from Study
  Country: US (occurrence: US)
  Receive Date: 20130612
  Receipt Date: 20130731
  Transmission Date: 20140515
  Serious: Yes (Other)
  Sender: FDA-Public Use
  Company Number: US-ELI_LILLY_AND_COMPANY-US201304005805

PATIENT
  Age: 76 Year
  Sex: Female

DRUGS (3)
  1. TERIPARATIDE [Suspect]
     Indication: BONE FORMATION INCREASED
     Dosage: 20 UG, QD
     Dates: start: 20130411
  2. TERIPARATIDE [Suspect]
     Indication: OSTEOPENIA
     Dosage: 20 UG, QD
  3. TERIPARATIDE [Suspect]
     Indication: FRACTURE
     Dosage: UNK, QD

REACTIONS (8)
  - Spinal fracture [Unknown]
  - Injection site erythema [Unknown]
  - Injection site bruising [Unknown]
  - Injection site haemorrhage [Unknown]
  - Impaired healing [Unknown]
  - Arthralgia [Unknown]
  - Off label use [Unknown]
  - Injection site pain [Unknown]
